FAERS Safety Report 6111171-3 (Version None)
Quarter: 2009Q1

REPORT INFORMATION
  Report Type: 
  Country: None (occurrence: None)
  Receive Date: 20090311
  Receipt Date: 20081014
  Transmission Date: 20090719
  Serious: No
  Sender: FDA-Public Use
  Company Number: US-KINGPHARMUSA00001-K200801199

PATIENT
  Sex: Female

DRUGS (1)
  1. ALTACE [Suspect]
     Dosage: 10 MG, QD
     Route: 048
     Dates: start: 19940101

REACTIONS (4)
  - FEELING ABNORMAL [None]
  - HEADACHE [None]
  - NAUSEA [None]
  - UNEVALUABLE EVENT [None]
